FAERS Safety Report 7865418-3 (Version None)
Quarter: 2011Q4

REPORT INFORMATION
  Report Type: 
  Country: None (occurrence: None)
  Receive Date: 20111028
  Receipt Date: 20101220
  Transmission Date: 20120403
  Serious: No
  Sender: FDA-Public Use
  Company Number: US-GLAXOSMITHKLINE-A0900623A

PATIENT
  Age: 81 Year
  Sex: Female

DRUGS (10)
  1. DIURETIC [Suspect]
     Route: 065
  2. LACTAID [Suspect]
     Route: 065
  3. PLAVIX [Suspect]
     Route: 065
  4. PREMARIN [Suspect]
     Route: 065
  5. TYLENOL-500 [Suspect]
     Route: 065
  6. MULTI-VITAMIN [Suspect]
     Route: 065
  7. ADVAIR DISKUS 100/50 [Suspect]
     Indication: CHRONIC OBSTRUCTIVE PULMONARY DISEASE
     Dosage: 1PUFF TWICE PER DAY
     Route: 055
     Dates: start: 20101001
  8. LORAZEPAM [Suspect]
     Route: 065
  9. CULTURELLE [Suspect]
     Route: 065
  10. OSCAL D [Suspect]
     Route: 048

REACTIONS (3)
  - BALANCE DISORDER [None]
  - DRUG INTERACTION [None]
  - COUGH [None]
